FAERS Safety Report 18158152 (Version 5)
Quarter: 2023Q1

REPORT INFORMATION
  Report Type: Report from Study
  Country: US (occurrence: US)
  Receive Date: 20200817
  Receipt Date: 20230310
  Transmission Date: 20230417
  Serious: Yes (Hospitalization, Other)
  Sender: FDA-Public Use
  Company Number: US-SHIRE-US202026443

PATIENT
  Age: 56 Year
  Sex: Female

DRUGS (12)
  1. TEDUGLUTIDE [Suspect]
     Active Substance: TEDUGLUTIDE
     Indication: Product used for unknown indication
     Dosage: 0.435 MILLILITER, QD
     Route: 058
     Dates: start: 20190910
  2. TEDUGLUTIDE [Suspect]
     Active Substance: TEDUGLUTIDE
     Indication: Product used for unknown indication
     Dosage: 0.435 MILLILITER, QD
     Route: 058
     Dates: start: 20190910
  3. TEDUGLUTIDE [Suspect]
     Active Substance: TEDUGLUTIDE
     Indication: Product used for unknown indication
     Dosage: 0.435 MILLILITER, QD
     Route: 058
     Dates: start: 20190910
  4. TEDUGLUTIDE [Suspect]
     Active Substance: TEDUGLUTIDE
     Indication: Product used for unknown indication
     Dosage: 0.435 MILLILITER, QD
     Route: 058
     Dates: start: 20190910
  5. TEDUGLUTIDE [Suspect]
     Active Substance: TEDUGLUTIDE
     Dosage: 0.352 MILLILITER, QD
     Route: 058
     Dates: start: 20190910
  6. TEDUGLUTIDE [Suspect]
     Active Substance: TEDUGLUTIDE
     Dosage: 0.352 MILLILITER, QD
     Route: 058
     Dates: start: 20190910
  7. TEDUGLUTIDE [Suspect]
     Active Substance: TEDUGLUTIDE
     Dosage: 0.352 MILLILITER, QD
     Route: 058
     Dates: start: 20190910
  8. TEDUGLUTIDE [Suspect]
     Active Substance: TEDUGLUTIDE
     Dosage: 0.352 MILLILITER, QD
     Route: 058
     Dates: start: 20190910
  9. TEDUGLUTIDE [Suspect]
     Active Substance: TEDUGLUTIDE
     Dosage: UNK
     Route: 050
     Dates: start: 20190910
  10. TEDUGLUTIDE [Suspect]
     Active Substance: TEDUGLUTIDE
     Dosage: UNK
     Route: 050
     Dates: start: 20190910
  11. TEDUGLUTIDE [Suspect]
     Active Substance: TEDUGLUTIDE
     Dosage: UNK
     Route: 050
     Dates: start: 20190910
  12. TEDUGLUTIDE [Suspect]
     Active Substance: TEDUGLUTIDE
     Dosage: UNK
     Route: 050
     Dates: start: 20190910

REACTIONS (4)
  - Myocardial infarction [Recovered/Resolved]
  - Chronic kidney disease [Unknown]
  - Iron deficiency [Unknown]
  - Hypotension [Recovering/Resolving]

NARRATIVE: CASE EVENT DATE: 20200228
